FAERS Safety Report 14091650 (Version 2)
Quarter: 2017Q4

REPORT INFORMATION
  Report Type: Spontaneous
  Country: IN (occurrence: IN)
  Receive Date: 20171016
  Receipt Date: 20171026
  Transmission Date: 20180321
  Serious: Yes (Hospitalization, Other)
  Sender: FDA-Public Use
  Company Number: IN-TORRENT-00001379

PATIENT
  Age: 31 Year
  Sex: Male

DRUGS (2)
  1. LORAZEPAM. [Concomitant]
     Active Substance: LORAZEPAM
  2. TOPIRAMATE. [Suspect]
     Active Substance: TOPIRAMATE

REACTIONS (1)
  - Drug-induced liver injury [Recovering/Resolving]
